FAERS Safety Report 20712799 (Version 2)
Quarter: 2022Q2

REPORT INFORMATION
  Report Type: Report from Study
  Country: US (occurrence: US)
  Receive Date: 20220415
  Receipt Date: 20220429
  Transmission Date: 20220721
  Serious: Yes (Hospitalization)
  Sender: FDA-Public Use
  Company Number: US-BAUSCH-BL-2022-009034

PATIENT
  Age: 57 Year
  Sex: Male

DRUGS (3)
  1. XIFAXAN [Suspect]
     Active Substance: RIFAXIMIN
     Indication: Liver disorder
     Dosage: TAKE 1 TABLET BY MOUTH TWICE DAILY
     Route: 048
  2. LACTULOSE [Concomitant]
     Active Substance: LACTULOSE
     Indication: Product used for unknown indication
  3. FUROSEMIDE [Concomitant]
     Active Substance: FUROSEMIDE
     Indication: Product used for unknown indication

REACTIONS (4)
  - Chronic hepatic failure [Unknown]
  - Inability to afford medication [Unknown]
  - Therapy interrupted [Unknown]
  - Insurance issue [Unknown]
